FAERS Safety Report 9295092 (Version 2)
Quarter: 2013Q2

REPORT INFORMATION
  Report Type: Spontaneous
  Country: US (occurrence: None)
  Receive Date: 20121227
  Receipt Date: 20130507
  Transmission Date: 20140414
  Serious: Yes (Other)
  Sender: FDA-Public Use
  Company Number: PHEH2012US020842

PATIENT
  Age: 34 Year
  Sex: Female

DRUGS (2)
  1. AFINITOR [Suspect]
     Indication: TUBEROUS SCLEROSIS
     Route: 048
     Dates: start: 20121013, end: 20121219
  2. PHENOBARBITAL (PHENOBARBITAL) [Concomitant]

REACTIONS (6)
  - Stomatitis [None]
  - Headache [None]
  - Mood swings [None]
  - Ear pain [None]
  - Polymenorrhoea [None]
  - Oropharyngeal pain [None]
